FAERS Safety Report 8202824-1 (Version None)
Quarter: 2012Q1

REPORT INFORMATION
  Report Type: 
  Country: None (occurrence: None)
  Receive Date: 20120312
  Receipt Date: 20120312
  Transmission Date: 20120608
  Serious: Yes (Life-Threatening, Other)
  Sender: FDA-Public Use
  Company Number: None

PATIENT
  Age: 62 Year
  Sex: Female
  Weight: 75.749 kg

DRUGS (1)
  1. CIPRO [Suspect]
     Dosage: 500 MG
     Route: 048
     Dates: start: 20120207, end: 20120214

REACTIONS (17)
  - HEADACHE [None]
  - BACK PAIN [None]
  - MUSCLE SPASMS [None]
  - ASTHENIA [None]
  - PALPITATIONS [None]
  - HYPERTENSION [None]
  - MUSCULOSKELETAL PAIN [None]
  - PAIN IN JAW [None]
  - HYPOAESTHESIA [None]
  - INSOMNIA [None]
  - PARANOIA [None]
  - HEART RATE IRREGULAR [None]
  - ABDOMINAL DISTENSION [None]
  - BLOOD PRESSURE FLUCTUATION [None]
  - THINKING ABNORMAL [None]
  - PAIN IN EXTREMITY [None]
  - AGITATION [None]
